FAERS Safety Report 10479920 (Version 4)
Quarter: 2016Q2

REPORT INFORMATION
  Report Type: Spontaneous
  Country: CA (occurrence: CA)
  Receive Date: 20140929
  Receipt Date: 20160530
  Transmission Date: 20160815
  Serious: Yes (Hospitalization, Other)
  Sender: FDA-Public Use
  Company Number: CA-ROCHE-1466910

PATIENT
  Age: 47 Year
  Sex: Female

DRUGS (2)
  1. XOLAIR [Suspect]
     Active Substance: OMALIZUMAB
     Dosage: UNK
     Route: 058
     Dates: start: 20160506
  2. XOLAIR [Suspect]
     Active Substance: OMALIZUMAB
     Indication: ASTHMA
     Dosage: 375 MG, BIW
     Route: 058
     Dates: start: 20140404

REACTIONS (12)
  - Malaise [Unknown]
  - Back pain [Unknown]
  - Dyspnoea [Unknown]
  - Neck pain [Unknown]
  - Obstructive airways disorder [Unknown]
  - Nausea [Recovered/Resolved]
  - Viraemia [Unknown]
  - Blood test abnormal [Unknown]
  - Pyrexia [Unknown]
  - Fatigue [Recovering/Resolving]
  - Restrictive pulmonary disease [Unknown]
  - Headache [Unknown]

NARRATIVE: CASE EVENT DATE: 20140404
